FAERS Safety Report 16696140 (Version 1)
Quarter: 2019Q3

REPORT INFORMATION
  Report Type: Report from Study
  Country: RO (occurrence: RO)
  Receive Date: 20190813
  Receipt Date: 20190813
  Transmission Date: 20191004
  Serious: Yes (Hospitalization, Other)
  Sender: FDA-Public Use
  Company Number: RO-ROCHE-2366588

PATIENT
  Sex: Female
  Weight: 65 kg

DRUGS (3)
  1. ARAVA [Concomitant]
     Active Substance: LEFLUNOMIDE
     Indication: RHEUMATOID ARTHRITIS
     Route: 065
  2. MABTHERA [Suspect]
     Active Substance: RITUXIMAB
     Indication: RHEUMATOID ARTHRITIS
     Dosage: ONCE AT 6 MONTHS, THEN ONCE PER YEAR DURING 2 YEARS
     Route: 042
  3. METHOTREXATE. [Concomitant]
     Active Substance: METHOTREXATE
     Indication: RHEUMATOID ARTHRITIS
     Route: 065

REACTIONS (5)
  - Gallbladder operation [Unknown]
  - Hip surgery [Unknown]
  - Haemoglobin decreased [Unknown]
  - Lung infection [Unknown]
  - Drug ineffective [Unknown]
